FAERS Safety Report 26175380 (Version 2)
Quarter: 2025Q4

REPORT INFORMATION
  Report Type: Report from Study
  Country: US (occurrence: US)
  Receive Date: 20251218
  Receipt Date: 20251223
  Transmission Date: 20260117
  Serious: Yes (Hospitalization)
  Sender: ELI LILLY AND COMPANY
  Company Number: US-ELI_LILLY_AND_COMPANY-US202512003267

PATIENT
  Age: 71 Year
  Sex: Female

DRUGS (4)
  1. EBGLYSS [Suspect]
     Active Substance: LEBRIKIZUMAB-LBKZ
     Indication: Dermatitis atopic
     Dosage: 250 MG, MONTHLY (1/M)
     Route: 065
     Dates: start: 20250908
  2. EBGLYSS [Suspect]
     Active Substance: LEBRIKIZUMAB-LBKZ
     Dosage: 250 MG, MONTHLY (1/M)
     Route: 065
     Dates: start: 20250908
  3. EBGLYSS [Suspect]
     Active Substance: LEBRIKIZUMAB-LBKZ
     Dosage: 250 MG, MONTHLY (1/M)
     Route: 058
  4. HYDRALAZINE HYDROCHLORIDE [Suspect]
     Active Substance: HYDRALAZINE HYDROCHLORIDE
     Indication: Blood pressure increased
     Dosage: UNK, UNKNOWN
     Route: 065

REACTIONS (7)
  - Blood pressure increased [Unknown]
  - Chest pain [Recovering/Resolving]
  - Dizziness [Unknown]
  - Fall [Unknown]
  - Loss of consciousness [Unknown]
  - Psoriasis [Not Recovered/Not Resolved]
  - Pustule [Unknown]

NARRATIVE: CASE EVENT DATE: 20250701
